FAERS Safety Report 12333215 (Version 2)
Quarter: 2016Q2

REPORT INFORMATION
  Report Type: Spontaneous
  Country: HR (occurrence: HR)
  Receive Date: 20160504
  Receipt Date: 20160530
  Transmission Date: 20160815
  Serious: Yes (Hospitalization, Other)
  Sender: FDA-Public Use
  Company Number: HR-KADMON PHARMACEUTICALS, LLC-KAD201605-001665

PATIENT
  Age: 64 Year
  Sex: Male

DRUGS (14)
  1. RIBAVIRIN. [Suspect]
     Active Substance: RIBAVIRIN
     Indication: HEPATITIS C
     Route: 048
  2. NTG [Concomitant]
     Active Substance: NITROGLYCERIN
  3. ALLOPURINOL. [Concomitant]
     Active Substance: ALLOPURINOL
  4. CONCOR [Concomitant]
     Active Substance: BISOPROLOL FUMARATE
  5. PURE BAKING SODA [Concomitant]
     Active Substance: SODIUM BICARBONATE
  6. FURSEMID [Concomitant]
     Active Substance: FUROSEMIDE
  7. VIEKIRA PAK [Suspect]
     Active Substance: DASABUVIR\OMBITASVIR\PARITAPREVIR\RITONAVIR
     Indication: HEPATITIS C
     Dosage: TABLET
     Route: 048
     Dates: start: 201511
  8. ISOPTIN SR [Concomitant]
     Active Substance: VERAPAMIL HYDROCHLORIDE
  9. CLEXANE [Concomitant]
     Active Substance: ENOXAPARIN SODIUM
  10. RIBAVIRIN. [Suspect]
     Active Substance: RIBAVIRIN
     Route: 048
  11. ANDOL [Concomitant]
     Active Substance: ASPIRIN
  12. ROCALTROL [Concomitant]
     Active Substance: CALCITRIOL
  13. ARANESP [Concomitant]
     Active Substance: DARBEPOETIN ALFA
  14. EBRANTIL [Concomitant]
     Active Substance: URAPIDIL

REACTIONS (2)
  - Anaemia [Recovering/Resolving]
  - Infarction [Recovering/Resolving]

NARRATIVE: CASE EVENT DATE: 20160414
